FAERS Safety Report 5642392-1 (Version None)
Quarter: 2008Q1

REPORT INFORMATION
  Report Type: 
  Country: None (occurrence: None)
  Receive Date: 20080227
  Receipt Date: 20080227
  Transmission Date: 20080703
  Serious: Yes (Other)
  Sender: FDA-Public Use
  Company Number: None

PATIENT
  Sex: Female

DRUGS (10)
  1. ATENOLOL [Suspect]
     Dosage: 100 MG BID PO
     Route: 048
     Dates: start: 20070401, end: 20080201
  2. LANTUS [Concomitant]
  3. PREMARIN [Concomitant]
  4. TERAZOSIN [Concomitant]
  5. GLYBURIDE [Concomitant]
  6. PAROXETINE HCL [Concomitant]
  7. AMLODIPINE [Concomitant]
  8. METFORMIN HCL [Concomitant]
  9. ATENOLOL [Concomitant]
  10. OMEPRAZOLE [Concomitant]

REACTIONS (1)
  - TACHYCARDIA [None]
